FAERS Safety Report 7740950-1 (Version None)
Quarter: 2011Q3

REPORT INFORMATION
  Report Type: 
  Country: None (occurrence: None)
  Receive Date: 20110909
  Receipt Date: 20110902
  Transmission Date: 20111222
  Serious: Yes (Death, Other)
  Sender: FDA-Public Use
  Company Number: PHHY2011BR37879

PATIENT
  Sex: Male

DRUGS (2)
  1. DIOVAN [Suspect]
     Dosage: 160 MG, UNK
  2. DIOVAN [Suspect]
     Indication: HYPERTENSION
     Dosage: 80 MG, UNK

REACTIONS (5)
  - VOMITING [None]
  - BLOOD PRESSURE INCREASED [None]
  - DIZZINESS [None]
  - PROSTATE CANCER [None]
  - LABYRINTHITIS [None]
